FAERS Safety Report 5401807-4 (Version None)
Quarter: 2007Q3

REPORT INFORMATION
  Report Type: 
  Country: None (occurrence: None)
  Receive Date: 20070731
  Receipt Date: 20070724
  Transmission Date: 20080115
  Serious: Yes (Other)
  Sender: FDA-Public Use
  Company Number: US-AMGEN-US224546

PATIENT
  Sex: Male
  Weight: 72.6 kg

DRUGS (3)
  1. PROCRIT [Suspect]
     Indication: ANAEMIA
     Route: 065
     Dates: start: 20060124, end: 20070102
  2. RIBAVIRIN [Concomitant]
     Route: 065
  3. INTERFERON [Concomitant]
     Route: 065

REACTIONS (1)
  - RENAL MASS [None]
